FAERS Safety Report 25746773 (Version 1)
Quarter: 2025Q3

REPORT INFORMATION
  Report Type: Report from Study
  Country: JP (occurrence: JP)
  Receive Date: 20250901
  Receipt Date: 20250901
  Transmission Date: 20251021
  Serious: Yes (Other)
  Sender: Haleon PLC
  Company Number: JP-HALEON-2181707

PATIENT
  Age: 54 Year
  Sex: Female
  Weight: 76.2 kg

DRUGS (1)
  1. ALLI [Suspect]
     Active Substance: ORLISTAT
     Indication: Product used for unknown indication
     Route: 048
     Dates: start: 20240408

REACTIONS (6)
  - Postmenopausal haemorrhage [Recovered/Resolved]
  - Hypertension [Unknown]
  - Abdominal pain [Unknown]
  - Steatorrhoea [Unknown]
  - Blood glucose abnormal [Unknown]
  - Wrong patient received product [Unknown]
